FAERS Safety Report 9416346 (Version 2)
Quarter: 2013Q3

REPORT INFORMATION
  Report Type: Spontaneous
  Country: US (occurrence: None)
  Receive Date: 20130718
  Receipt Date: 20130729
  Transmission Date: 20140515
  Serious: Yes (Hospitalization, Other)
  Sender: FDA-Public Use
  Company Number: SYM-2013-06302

PATIENT
  Age: 78 Year
  Sex: Female

DRUGS (14)
  1. FLUOROURACIL [Suspect]
     Indication: COLON CANCER
  2. OXALIPLATIN [Concomitant]
     Indication: COLON CANCER
  3. LEUCOVORIN (FOLINIC ACID) (FOLINIC ACID) [Suspect]
     Indication: COLON CANCER
  4. METHYLPREDNISOLONE [Suspect]
     Indication: PNEUMONIA
     Route: 042
  5. PROCHLORPERAZINE (PROCHLORPERAZINE) (PROCHLORPERAZINE) [Concomitant]
  6. ONDANSETRON (ONDANSETRONE) (ONDANSETRON) [Concomitant]
  7. FERROUS FUMARATE (FERROUS FUMARATE) (FERROUS FUMARATE) [Concomitant]
  8. ATENOLOL (ATENOLOL) (ATENOLOL) [Concomitant]
  9. WARFARIN (WARFARIN) (WARFARIN) [Concomitant]
  10. SIMVASTATIN (SIMVASTATIN) (SIMVASTATIN) [Concomitant]
  11. FOLIC ACID (FOLIC ACID) (FOLIC ACID) [Concomitant]
  12. MULTIVITAMINS (MULTIVITAMINS) (ERGOCALCIFEROL, ASCORBIC ACID, FOLIC ACID, THIAMINE HYDROCHLORIDE, RETINOL, NICOTINAMIDE, PANTHENOL) [Concomitant]
  13. LISINOPRIL (LISINOPRIL) (LISINOPRIL) [Concomitant]
  14. SERTRALINE (SERTRALINE) (SERTRALINE) [Concomitant]

REACTIONS (5)
  - Organising pneumonia [None]
  - Neutropenia [None]
  - Thrombocytopenia [None]
  - Anaemia [None]
  - Pleural effusion [None]
